FAERS Safety Report 12918342 (Version 3)
Quarter: 2017Q1

REPORT INFORMATION
  Report Type: Spontaneous
  Country: US (occurrence: US)
  Receive Date: 20161107
  Receipt Date: 20170223
  Transmission Date: 20170428
  Serious: Yes (Other)
  Sender: FDA-Public Use
  Company Number: US-TAIHO ONCOLOGY INC-EU-2016-02886

PATIENT
  Age: 73 Year
  Sex: Female

DRUGS (11)
  1. LONSURF [Suspect]
     Active Substance: TIPIRACIL HYDROCHLORIDE\TRIFLURIDINE
     Indication: RECTAL CANCER METASTATIC
     Route: 048
     Dates: start: 20160714
  2. LEVOTHYROXINE. [Concomitant]
     Active Substance: LEVOTHYROXINE
     Dosage: NI
  3. DIGOXIN. [Concomitant]
     Active Substance: DIGOXIN
     Dosage: NI
  4. WARFARIN [Concomitant]
     Active Substance: WARFARIN
     Dosage: NI
  5. NOVOLOG [Concomitant]
     Active Substance: INSULIN ASPART
     Dosage: NI
  6. LANTUS [Concomitant]
     Active Substance: INSULIN GLARGINE
     Dosage: NI
  7. BUMETANIDE. [Concomitant]
     Active Substance: BUMETANIDE
     Dosage: NI
  8. ATORVASTATIN [Concomitant]
     Active Substance: ATORVASTATIN
     Dosage: NI
  9. AMIODARONE [Concomitant]
     Active Substance: AMIODARONE
     Dosage: NI
  10. METOPROLOL. [Concomitant]
     Active Substance: METOPROLOL
     Dosage: NI
  11. ENALAPRIL [Concomitant]
     Active Substance: ENALAPRIL
     Dosage: NI

REACTIONS (1)
  - Anaemia [Not Recovered/Not Resolved]

NARRATIVE: CASE EVENT DATE: 20161026
